FAERS Safety Report 4342386-2 (Version None)
Quarter: 2004Q2

REPORT INFORMATION
  Report Type: 
  Country: None (occurrence: None)
  Receive Date: 20040416
  Receipt Date: 20040407
  Transmission Date: 20050107
  Serious: Yes (Death, Other)
  Sender: FDA-Public Use
  Company Number: 2004023941

PATIENT
  Sex: 0

DRUGS (2)
  1. GEODON [Suspect]
     Indication: ILL-DEFINED DISORDER
  2. ETHANOL (ETHANOL) [Concomitant]

REACTIONS (2)
  - BLOOD ALCOHOL INCREASED [None]
  - COMPLETED SUICIDE [None]
